FAERS Safety Report 18904230 (Version 1)
Quarter: 2021Q1

REPORT INFORMATION
  Report Type: Spontaneous
  Country: US (occurrence: US)
  Receive Date: 20210217
  Receipt Date: 20210217
  Transmission Date: 20210420
  Serious: Yes (Hospitalization)
  Sender: FDA-Public Use
  Company Number: None

PATIENT
  Age: 61 Year
  Sex: Female
  Weight: 50.35 kg

DRUGS (1)
  1. INSULIN, GLARGINE, HUMAN 110 UNT/ML INJ [Suspect]
     Active Substance: INSULIN GLARGINE
     Indication: DIABETES MELLITUS
     Dosage: ?          OTHER FREQUENCY:BEDTIME;?
     Route: 058
     Dates: start: 20200929, end: 20201029

REACTIONS (3)
  - Hyperglycaemia [None]
  - Impaired self-care [None]
  - Treatment noncompliance [None]

NARRATIVE: CASE EVENT DATE: 20201023
